FAERS Safety Report 18867196 (Version 1)
Quarter: 2021Q1

REPORT INFORMATION
  Report Type: Spontaneous
  Country: US (occurrence: US)
  Receive Date: 20210209
  Receipt Date: 20210209
  Transmission Date: 20210420
  Serious: Yes (Hospitalization, Other)
  Sender: FDA-Public Use
  Company Number: US-PURDUE-USA-2020-0204899

PATIENT
  Sex: Male

DRUGS (4)
  1. VALIUM [Suspect]
     Active Substance: DIAZEPAM
     Indication: SPINAL FUSION SURGERY
     Dosage: UNKNOWN
     Route: 065
  2. HYDROCODONE BITARTRATE (SIMILAR TO NDA 206627) [Suspect]
     Active Substance: HYDROCODONE BITARTRATE
     Indication: SPINAL FUSION SURGERY
     Dosage: UNKNOWN
     Route: 048
  3. MORPHINE [Suspect]
     Active Substance: MORPHINE
     Indication: SPINAL FUSION SURGERY
     Dosage: UNKNOWN
     Route: 065
  4. OXYCONTIN [Suspect]
     Active Substance: OXYCODONE HYDROCHLORIDE
     Indication: SPINAL FUSION SURGERY
     Dosage: UNKNOWN
     Route: 048

REACTIONS (1)
  - Delirium [Unknown]
